FAERS Safety Report 5441216-5 (Version None)
Quarter: 2007Q3

REPORT INFORMATION
  Report Type: 
  Country: None (occurrence: None)
  Receive Date: 20070901
  Receipt Date: 20070823
  Transmission Date: 20080115
  Serious: Yes (Other)
  Sender: FDA-Public Use
  Company Number: US-PFIZER INC-2007070448

PATIENT
  Sex: Female
  Weight: 52.2 kg

DRUGS (4)
  1. LIPITOR [Suspect]
     Indication: BLOOD CHOLESTEROL INCREASED
  2. PLAVIX [Concomitant]
  3. ALPRAZOLAM [Concomitant]
  4. METOPROLOL SUCCINATE [Concomitant]

REACTIONS (5)
  - ABDOMINAL DISTENSION [None]
  - BLOOD TRIGLYCERIDES INCREASED [None]
  - FLATULENCE [None]
  - LOW DENSITY LIPOPROTEIN [None]
  - VASCULAR GRAFT [None]
